FAERS Safety Report 4455891-5 (Version None)
Quarter: 2004Q3

REPORT INFORMATION
  Report Type: 
  Country: None (occurrence: None)
  Receive Date: 20040920
  Receipt Date: 20040902
  Transmission Date: 20050211
  Serious: Yes (Death)
  Sender: FDA-Public Use
  Company Number: 702210

PATIENT
  Sex: Female

DRUGS (8)
  1. AMEVIVE [Suspect]
     Indication: PSORIASIS
     Dosage: 15 MG QW IM
     Route: 030
     Dates: start: 20040211, end: 20040428
  2. FOLIC ACID [Concomitant]
  3. COLCHICINE [Concomitant]
  4. COZAAR [Concomitant]
  5. ASPIRIN [Concomitant]
  6. BUMETANIDE [Concomitant]
  7. NITRO-DUR [Concomitant]
  8. HYDROXYZINE [Concomitant]

REACTIONS (1)
  - CARDIAC DISORDER [None]
